FAERS Safety Report 8241419-0 (Version None)
Quarter: 2012Q1

REPORT INFORMATION
  Report Type: 
  Country: None (occurrence: None)
  Receive Date: 20120328
  Receipt Date: 20120319
  Transmission Date: 20120608
  Serious: Yes (Life-Threatening)
  Sender: FDA-Public Use
  Company Number: NL-MEDIMMUNE-MEDI-0015309

PATIENT
  Sex: Female

DRUGS (1)
  1. SYNAGIS [Suspect]
     Indication: PREMATURE BABY
     Route: 030
     Dates: start: 20111221, end: 20120222

REACTIONS (2)
  - RHINOVIRUS INFECTION [None]
  - RESPIRATORY TRACT INFECTION [None]
